FAERS Safety Report 12474321 (Version 1)
Quarter: 2016Q2

REPORT INFORMATION
  Report Type: Spontaneous
  Country: US (occurrence: None)
  Receive Date: 20160616
  Receipt Date: 20160616
  Transmission Date: 20160815
  Serious: No
  Sender: FDA-Public Use
  Company Number: None

PATIENT
  Age: 64 Year
  Sex: Male
  Weight: 63.5 kg

DRUGS (3)
  1. SUMATRIPTAN TABLETS, USP 50MG, 50 MG DR. REDDY^S LABORATORY LIMITED, BAC [Suspect]
     Active Substance: SUMATRIPTAN
     Indication: MIGRAINE
     Route: 048
  2. MULTIVITAMIN [Concomitant]
     Active Substance: VITAMINS
  3. MAGNESIUM [Concomitant]
     Active Substance: MAGNESIUM

REACTIONS (2)
  - Drug ineffective [None]
  - Product dosage form issue [None]

NARRATIVE: CASE EVENT DATE: 20160614
